FAERS Safety Report 6538336-0 (Version None)
Quarter: 2010Q1

REPORT INFORMATION
  Report Type: 
  Country: None (occurrence: None)
  Receive Date: 20100112
  Receipt Date: 20100112
  Transmission Date: 20100710
  Serious: Yes (Other)
  Sender: FDA-Public Use
  Company Number: None

PATIENT
  Age: 53 Year
  Sex: Male
  Weight: 97.5234 kg

DRUGS (3)
  1. METFORMIN HCL [Suspect]
     Indication: DIABETES MELLITUS
     Dosage: 1 TABLE TWICE A DAY PO
     Route: 048
     Dates: start: 20091208, end: 20091216
  2. METFORMIN HCL [Suspect]
  3. METFORMIN HCL [Suspect]

REACTIONS (3)
  - CARDIAC DISORDER [None]
  - PRODUCT CONTAMINATION [None]
  - VENTRICULAR EXTRASYSTOLES [None]
